FAERS Safety Report 22221861 (Version 1)
Quarter: 2023Q2

REPORT INFORMATION
  Report Type: Spontaneous
  Country: CA (occurrence: CA)
  Receive Date: 20230418
  Receipt Date: 20230418
  Transmission Date: 20230721
  Serious: Yes (Hospitalization)
  Sender: FDA-Public Use
  Company Number: CA-BAXTER-2023BAX018451

PATIENT
  Age: 84 Year
  Sex: Male
  Weight: 83 kg

DRUGS (1)
  1. ONDANSETRON [Suspect]
     Active Substance: ONDANSETRON
     Indication: Nausea
     Dosage: DOSAGE FORM: NOT SPECIFED, AT UNSPECIFIED DOSE AND FREQUENCY
     Route: 042

REACTIONS (1)
  - Drug ineffective [Unknown]
